FAERS Safety Report 9659218 (Version 1)
Quarter: 2013Q4

REPORT INFORMATION
  Report Type: Spontaneous
  Country: US (occurrence: US)
  Receive Date: 20131031
  Receipt Date: 20131031
  Transmission Date: 20140711
  Serious: Yes (Life-Threatening)
  Sender: FDA-Public Use
  Company Number: US-DRREDDYS-USA/USA/13/0035255

PATIENT
  Age: 21 Year
  Sex: Male

DRUGS (3)
  1. CITALOPRAM 40 MG [Suspect]
     Indication: PRODUCT USED FOR UNKNOWN INDICATION
     Route: 065
  2. OLANZAPINE TABLETS 2.5 MG, 5 MG, 7.5 MG + 10 MG [Suspect]
     Indication: PRODUCT USED FOR UNKNOWN INDICATION
     Route: 065
  3. CLONAZEPAM [Suspect]
     Indication: PRODUCT USED FOR UNKNOWN INDICATION
     Route: 065

REACTIONS (14)
  - Unresponsive to stimuli [Unknown]
  - Convulsion [Unknown]
  - Hypothermia [Unknown]
  - Miosis [Unknown]
  - Rales [Unknown]
  - Electrocardiogram QRS complex prolonged [Unknown]
  - Leukocytosis [Unknown]
  - Blood creatine phosphokinase increased [Unknown]
  - Blood lactic acid increased [Unknown]
  - Hypotension [Unknown]
  - Bradycardia [Unknown]
  - Pneumonia aspiration [Unknown]
  - Drug level above therapeutic [Recovering/Resolving]
  - Overdose [Unknown]
